FAERS Safety Report 23671018 (Version 3)
Quarter: 2024Q2

REPORT INFORMATION
  Report Type: Report from Study
  Country: US (occurrence: US)
  Receive Date: 20240326
  Receipt Date: 20240611
  Transmission Date: 20240715
  Serious: Yes (Hospitalization)
  Sender: FDA-Public Use
  Company Number: US-BoehringerIngelheim-2022-BI-179594

PATIENT
  Age: 69 Year
  Sex: Female

DRUGS (2)
  1. OFEV [Suspect]
     Active Substance: NINTEDANIB
     Indication: Idiopathic pulmonary fibrosis
     Route: 048
     Dates: start: 20220621
  2. OFEV [Suspect]
     Active Substance: NINTEDANIB
     Indication: Fibrosis
     Dosage: 204096, 300318
     Route: 048

REACTIONS (23)
  - Vaginal haemorrhage [Unknown]
  - Spinal operation [Unknown]
  - Syncope [Unknown]
  - Rectal haemorrhage [Unknown]
  - Nausea [Not Recovered/Not Resolved]
  - Headache [Not Recovered/Not Resolved]
  - Flatulence [Not Recovered/Not Resolved]
  - Diarrhoea [Not Recovered/Not Resolved]
  - Nausea [Recovered/Resolved]
  - Decreased appetite [Recovering/Resolving]
  - Weight decreased [Recovering/Resolving]
  - Flatulence [Recovering/Resolving]
  - Abdominal discomfort [Recovered/Resolved]
  - Dehydration [Unknown]
  - Bowel movement irregularity [Unknown]
  - Thirst [Unknown]
  - Dry throat [Unknown]
  - Diarrhoea [Unknown]
  - Laryngitis [Unknown]
  - Constipation [Not Recovered/Not Resolved]
  - Abdominal pain upper [Unknown]
  - Skin exfoliation [Unknown]
  - Seasonal allergy [Unknown]

NARRATIVE: CASE EVENT DATE: 20220621
